FAERS Safety Report 13879075 (Version 3)
Quarter: 2017Q3

REPORT INFORMATION
  Report Type: Spontaneous
  Country: US (occurrence: US)
  Receive Date: 20170817
  Receipt Date: 20170921
  Transmission Date: 20171127
  Serious: Yes (Death)
  Sender: FDA-Public Use
  Company Number: US-ACTELION-A-NJ2017-158257

PATIENT
  Age: 71 Year
  Sex: Male

DRUGS (3)
  1. OPSUMIT [Suspect]
     Active Substance: MACITENTAN
     Indication: PULMONARY ARTERIAL HYPERTENSION
     Dosage: 10 MG, QD
     Route: 048
     Dates: start: 20161123, end: 20170814
  2. TADALAFIL [Concomitant]
     Active Substance: TADALAFIL
     Dosage: 40 MG, UNK
     Route: 048
  3. TREPROSTINIL [Concomitant]
     Active Substance: TREPROSTINIL
     Dosage: 106 UNK, UNK
     Route: 058

REACTIONS (5)
  - Right ventricular failure [Fatal]
  - Hypoxia [Fatal]
  - Condition aggravated [Fatal]
  - Renal failure [Fatal]
  - Disease progression [Fatal]

NARRATIVE: CASE EVENT DATE: 20170814
